FAERS Safety Report 15205159 (Version 2)
Quarter: 2018Q3

REPORT INFORMATION
  Report Type: Report from Study
  Country: IT (occurrence: IT)
  Receive Date: 20180726
  Receipt Date: 20180828
  Transmission Date: 20181010
  Serious: Yes (Hospitalization, Other)
  Sender: FDA-Public Use
  Company Number: IT-EXELIXIS-XL18418015015

PATIENT
  Age: 39 Year
  Sex: Male
  Weight: 79 kg

DRUGS (7)
  1. BLINDED XL184 [Suspect]
     Active Substance: CABOZANTINIB
     Indication: MEDULLARY THYROID CANCER
     Dosage: UNK
     Route: 048
     Dates: start: 20180705
  2. LEVOTHYROXINE. [Concomitant]
     Active Substance: LEVOTHYROXINE
  3. CALCIUM CARBONATE. [Concomitant]
     Active Substance: CALCIUM CARBONATE
  4. DOXAZOSINE [Concomitant]
     Active Substance: DOXAZOSIN MESYLATE
  5. CALCITRIOL. [Concomitant]
     Active Substance: CALCITRIOL
  6. NEBIVOLOL. [Concomitant]
     Active Substance: NEBIVOLOL
  7. BLINDED XL184 [Suspect]
     Active Substance: CABOZANTINIB
     Indication: MEDULLARY THYROID CANCER
     Dosage: UNK
     Route: 048
     Dates: start: 20180705

REACTIONS (1)
  - Liver function test abnormal [Recovering/Resolving]

NARRATIVE: CASE EVENT DATE: 20180719
